FAERS Safety Report 9425096 (Version 2)
Quarter: 2013Q3

REPORT INFORMATION
  Report Type: Spontaneous
  Country: US (occurrence: US)
  Receive Date: 20130729
  Receipt Date: 20130802
  Transmission Date: 20140515
  Serious: Yes (Other)
  Sender: FDA-Public Use
  Company Number: US-GLAXOSMITHKLINE-A1035142A

PATIENT
  Age: 52 Year
  Sex: Female
  Weight: 81.4 kg

DRUGS (6)
  1. WELLBUTRIN [Suspect]
     Indication: DEPRESSION
     Route: 065
     Dates: start: 1993
  2. EFFEXOR [Suspect]
     Indication: PRODUCT USED FOR UNKNOWN INDICATION
     Route: 065
     Dates: start: 1993
  3. ZOLOFT [Suspect]
     Indication: DEPRESSION
     Route: 065
     Dates: start: 1993
  4. PROZAC [Suspect]
     Indication: DEPRESSION
     Route: 065
     Dates: start: 1993
  5. VICODIN [Suspect]
     Indication: PAIN
     Route: 065
  6. PHENTERMINE [Concomitant]

REACTIONS (8)
  - Diabetes mellitus [Unknown]
  - Abnormal dreams [Recovered/Resolved]
  - Crying [Recovered/Resolved]
  - Insomnia [Unknown]
  - Weight increased [Unknown]
  - Hypertension [Unknown]
  - Blood cholesterol abnormal [Unknown]
  - Drug ineffective [Unknown]
